FAERS Safety Report 19713777 (Version 1)
Quarter: 2021Q3

REPORT INFORMATION
  Report Type: Spontaneous
  Country: PL (occurrence: PL)
  Receive Date: 20210817
  Receipt Date: 20210817
  Transmission Date: 20211014
  Serious: Yes (Other)
  Sender: FDA-Public Use
  Company Number: PL-BAUSCH-BL-2021-027984

PATIENT
  Age: 44 Year
  Sex: Male

DRUGS (3)
  1. DEXAVEN [Suspect]
     Active Substance: DEXAMETHASONE
     Indication: DERMATITIS CONTACT
     Route: 042
     Dates: start: 20210719
  2. CALCIUM [Concomitant]
     Active Substance: CALCIUM
     Indication: PRODUCT USED FOR UNKNOWN INDICATION
     Dosage: 3 X 1
  3. JANSSEN COVID?19 VACCINE [Suspect]
     Active Substance: AD26.COV2.S
     Indication: IMMUNISATION
     Dosage: VACCINATION SITE LEFT ARM.
     Route: 065
     Dates: start: 20210713, end: 20210713

REACTIONS (2)
  - Dermatitis contact [Unknown]
  - Therapy non-responder [Unknown]

NARRATIVE: CASE EVENT DATE: 202107
